FAERS Safety Report 22190004 (Version 1)
Quarter: 2023Q2

REPORT INFORMATION
  Report Type: Other
  Country: US (occurrence: None)
  Receive Date: 20230410
  Receipt Date: 20230410
  Transmission Date: 20230722
  Serious: Yes (Hospitalization)
  Sender: FDA-Public Use
  Company Number: US-ROCHE-2910996

PATIENT
  Age: 73 Year
  Sex: Female

DRUGS (27)
  1. CELLCEPT [Suspect]
     Active Substance: MYCOPHENOLATE MOFETIL
     Indication: Systemic lupus erythematosus
     Dosage: 2 CAPSULES TWICE A DAY, PRESCRIBED ON JUL/2021
     Route: 048
  2. AMLODIPINE [Concomitant]
     Active Substance: AMLODIPINE BESYLATE
  3. ASPIRIN [Concomitant]
     Active Substance: ASPIRIN
  4. ATORVASTATIN [Concomitant]
     Active Substance: ATORVASTATIN
  5. BIOTIN [Concomitant]
     Active Substance: BIOTIN
  6. BREO ELLIPTA [Concomitant]
     Active Substance: FLUTICASONE FUROATE\VILANTEROL TRIFENATATE
     Dosage: 100 MCG-25 MCG /DOSE POWDER FOR INHALATION
  7. CALCIUM CARBONATE [Concomitant]
     Active Substance: CALCIUM CARBONATE
  8. CLOBETASOL [Concomitant]
     Active Substance: CLOBETASOL
     Dosage: APPLY TO SCALP 1 TO 2 TIMES DAILY WHEN FLARED
  9. EYLEA [Concomitant]
     Active Substance: AFLIBERCEPT
     Dosage: INJECT 2 MG IN EVERY MONTH BY INTRAOCULAR ROUTE FOR 26 DAYS
  10. FAMOTIDINE [Concomitant]
     Active Substance: FAMOTIDINE
  11. FAMOTIDINE [Concomitant]
     Active Substance: FAMOTIDINE
  12. FUROSEMIDE [Concomitant]
     Active Substance: FUROSEMIDE
  13. GABAPENTIN [Concomitant]
     Active Substance: GABAPENTIN
     Dosage: TAKE 1 CAPSULE BY MOUTH EVERY NIGHT AT BEDTIME
  14. HYDROCORTISONE [Concomitant]
     Active Substance: HYDROCORTISONE
     Dosage: APPLY TWICE DAILY TO THE AFFECTED AREA ON BODY
  15. KETOCONAZOLE [Concomitant]
     Active Substance: KETOCONAZOLE
  16. LEVOTHYROXINE [Concomitant]
     Active Substance: LEVOTHYROXINE
     Dosage: 175 MCG TABLET , TAKE 1 TABLET BY MOUTH DAILY
  17. MECLIZINE [Concomitant]
     Active Substance: MECLIZINE HYDROCHLORIDE
  18. OZURDEX [Concomitant]
     Active Substance: DEXAMETHASONE
  19. POTASSIUM CHLORIDE [Concomitant]
     Active Substance: POTASSIUM CHLORIDE
     Dosage: TAKE 2 TABLET BY MOUTH DAILY
  20. MONTELUKAST [Concomitant]
     Active Substance: MONTELUKAST SODIUM
     Route: 048
  21. PREDNISONE [Concomitant]
     Active Substance: PREDNISONE
     Route: 048
  22. RESTASIS [Concomitant]
     Active Substance: CYCLOSPORINE
  23. TELMISARTAN [Concomitant]
     Active Substance: TELMISARTAN
  24. TRIAMCINOLONE ACETONIDE [Concomitant]
     Active Substance: TRIAMCINOLONE ACETONIDE
  25. VALACYCLOVIR [Concomitant]
     Active Substance: VALACYCLOVIR HYDROCHLORIDE
  26. VITAMIN C [Concomitant]
     Active Substance: ASCORBIC ACID
  27. VITAMIN D3 [Concomitant]
     Active Substance: CHOLECALCIFEROL
     Route: 048

REACTIONS (6)
  - Product prescribing error [Unknown]
  - Off label use [Unknown]
  - Systemic lupus erythematosus [Unknown]
  - Illness [Unknown]
  - Feeling abnormal [Unknown]
  - Intentional product misuse [Unknown]
